FAERS Safety Report 5940262-2 (Version None)
Quarter: 2008Q4

REPORT INFORMATION
  Report Type: 
  Country: None (occurrence: None)
  Receive Date: 20081104
  Receipt Date: 20081024
  Transmission Date: 20090506
  Serious: Yes (Other)
  Sender: FDA-Public Use
  Company Number: KR-BAXTER-2008BH011514

PATIENT

DRUGS (4)
  1. CYCLOPHOSPHAMIDE [Suspect]
     Indication: LYMPHOHISTIOCYTOSIS
     Route: 042
  2. DOXORUBICIN HCL [Suspect]
     Indication: LYMPHOHISTIOCYTOSIS
     Route: 042
  3. VINCRISTINE SULFATE [Suspect]
     Indication: LYMPHOHISTIOCYTOSIS
     Route: 065
  4. PREDNISONE TAB [Suspect]
     Indication: LYMPHOHISTIOCYTOSIS
     Route: 065

REACTIONS (2)
  - HAEMATOTOXICITY [None]
  - SPLENIC HAEMORRHAGE [None]
